FAERS Safety Report 9488853 (Version 2)
Quarter: 2013Q3

REPORT INFORMATION
  Report Type: Report from Study
  Country: GR (occurrence: GR)
  Receive Date: 20130829
  Receipt Date: 20130829
  Transmission Date: 20140515
  Serious: Yes (Hospitalization)
  Sender: FDA-Public Use
  Company Number: GR-VERTEX PHARMACEUTICALS INC-000000000000000901

PATIENT
  Age: 59 Year
  Sex: Male
  Weight: 70 kg

DRUGS (5)
  1. VX-950 (TELAPREVIR) [Suspect]
     Indication: HEPATITIS C
     Dosage: DOSAGE FORM: TABLET
     Route: 048
     Dates: start: 20120329, end: 20120616
  2. RIBAVIRIN [Suspect]
     Indication: HEPATITIS C
     Dosage: DOSAGE FORM: TABLET
     Route: 048
     Dates: start: 20120329
  3. RIBAVIRIN [Suspect]
     Dosage: DOSAGE FORM: TABLET
     Route: 048
     Dates: start: 201206
  4. RIBAVIRIN [Suspect]
     Dosage: DOSAGE FORM: TABLET
     Route: 048
     Dates: start: 20120616
  5. PEGINTERFERON ALFA 2A [Suspect]
     Indication: HEPATITIS C
     Dosage: 120 ?G, QW
     Route: 030
     Dates: start: 20120329

REACTIONS (3)
  - Fatigue [Recovered/Resolved]
  - Malaise [Recovered/Resolved]
  - Anaemia [Recovered/Resolved]
